FAERS Safety Report 7355105-2 (Version None)
Quarter: 2011Q1

REPORT INFORMATION
  Report Type: 
  Country: None (occurrence: None)
  Receive Date: 20110307
  Receipt Date: 20100315
  Transmission Date: 20110831
  Serious: No
  Sender: FDA-Public Use
  Company Number: AEUSA201000079

PATIENT
  Age: 56 Year
  Sex: Female
  Weight: 182 kg

DRUGS (5)
  1. FLOVENT [Concomitant]
  2. PROLASTIN-C [Suspect]
     Indication: ALPHA-1 ANTI-TRYPSIN DEFICIENCY
     Dosage: 5056 MG;QW;IV   26NH171 SPIRIVA  FLOVENT   PULMICORT   SINGULAR
  3. SPIRIVA [Concomitant]
  4. PULMICORT [Concomitant]
  5. SINGULAIR [Concomitant]

REACTIONS (5)
  - HYPOAESTHESIA ORAL [None]
  - NAUSEA [None]
  - CONTRAST MEDIA REACTION [None]
  - DIZZINESS [None]
  - HYPERSENSITIVITY [None]
